APPROVED DRUG PRODUCT: DESOXIMETASONE
Active Ingredient: DESOXIMETASONE
Strength: 0.05%
Dosage Form/Route: CREAM;TOPICAL
Application: A203787 | Product #001
Applicant: SCIEGEN PHARMACEUTICALS INC
Approved: Jan 6, 2017 | RLD: No | RS: No | Type: DISCN